FAERS Safety Report 7662087-2 (Version None)
Quarter: 2011Q3

REPORT INFORMATION
  Report Type: 
  Country: None (occurrence: None)
  Receive Date: 20110805
  Receipt Date: 20101210
  Transmission Date: 20111222
  Serious: No
  Sender: FDA-Public Use
  Company Number: US-ABBOTT-10P-163-0690718-00

PATIENT
  Sex: Female
  Weight: 77.18 kg

DRUGS (6)
  1. NIASPAN [Suspect]
     Indication: BLOOD CHOLESTEROL
     Dates: start: 20101201
  2. PLAVIX [Concomitant]
     Indication: ANGIOPLASTY
  3. BENICAR [Concomitant]
     Indication: BLOOD PRESSURE
  4. BECLOMETHASONE DIPROPIONATE [Concomitant]
     Indication: ASTHMA
  5. PROVENTIL [Concomitant]
     Indication: PRODUCT USED FOR UNKNOWN INDICATION
  6. SYNTHROID [Concomitant]
     Indication: PRODUCT USED FOR UNKNOWN INDICATION

REACTIONS (8)
  - DEPRESSION [None]
  - DIZZINESS [None]
  - FATIGUE [None]
  - PRURITUS [None]
  - DECREASED APPETITE [None]
  - ABDOMINAL PAIN LOWER [None]
  - POLLAKIURIA [None]
  - PAIN IN EXTREMITY [None]
